FAERS Safety Report 5817721-6 (Version None)
Quarter: 2008Q3

REPORT INFORMATION
  Report Type: 
  Country: None (occurrence: None)
  Receive Date: 20080722
  Receipt Date: 20080715
  Transmission Date: 20090109
  Serious: Yes (Other)
  Sender: FDA-Public Use
  Company Number: PHEH2008US06295

PATIENT
  Sex: Male
  Weight: 68.027 kg

DRUGS (6)
  1. MIOCHOL-E [Suspect]
     Indication: MIOSIS
     Dosage: UNK
     Dates: start: 20080501, end: 20080501
  2. LIPITOR [Concomitant]
  3. REQUIP [Concomitant]
  4. LYRICA [Concomitant]
  5. LOSARTAN POTASSIUM [Concomitant]
  6. JANUMET [Concomitant]

REACTIONS (3)
  - BLINDNESS UNILATERAL [None]
  - ENDOPHTHALMITIS [None]
  - EYE EXCISION [None]
